FAERS Safety Report 8282115-3 (Version None)
Quarter: 2012Q2

REPORT INFORMATION
  Report Type: 
  Country: None (occurrence: None)
  Receive Date: 20120413
  Receipt Date: 20120404
  Transmission Date: 20120825
  Serious: Yes (Death)
  Sender: FDA-Public Use
  Company Number: US-PFIZER INC-2011310583

PATIENT
  Age: 51 Year
  Sex: Male

DRUGS (6)
  1. DIAZEPAM [Suspect]
     Route: 048
  2. ALLOPURINOL [Suspect]
     Route: 048
  3. VENLAFAXINE HCL [Suspect]
     Route: 048
  4. ETHANOL [Suspect]
     Route: 048
  5. DIFLUNISAL [Suspect]
     Route: 048
  6. OXYCODONE HCL [Suspect]
     Route: 048

REACTIONS (3)
  - COMPLETED SUICIDE [None]
  - RESPIRATORY ARREST [None]
  - CARDIAC ARREST [None]
